FAERS Safety Report 16470617 (Version 2)
Quarter: 2019Q3

REPORT INFORMATION
  Report Type: Report from Study
  Country: SI (occurrence: SI)
  Receive Date: 20190624
  Receipt Date: 20190709
  Transmission Date: 20191004
  Serious: Yes (Hospitalization)
  Sender: FDA-Public Use
  Company Number: SI-BAYER-2019-112717

PATIENT
  Sex: Female

DRUGS (9)
  1. NOLPAZA [Concomitant]
     Active Substance: PANTOPRAZOLE SODIUM
     Dosage: DAILY DOSE 40 MG
  2. XIFAXAN [Concomitant]
     Active Substance: RIFAXIMIN
     Dosage: 2X550 MG
  3. EZOLETA [Concomitant]
     Dosage: DAILY DOSE 10 MG
  4. PORTALAK [LACTULOSE] [Concomitant]
     Dosage: UNK
  5. ALPHA D3 [Concomitant]
     Active Substance: ALFACALCIDOL
     Dosage: DAILY DOSE .25 MG
  6. CONCOR [Concomitant]
     Active Substance: BISOPROLOL FUMARATE
     Dosage: DAILY DOSE 1.25 MG
  7. NOVORAPID [Concomitant]
     Active Substance: INSULIN ASPART
     Dosage: UNK
  8. NEXAVAR [Suspect]
     Active Substance: SORAFENIB
     Indication: HEPATOCELLULAR CARCINOMA
     Dosage: UNK
     Dates: start: 20190607, end: 20190619
  9. DIUVER [Concomitant]
     Active Substance: TORSEMIDE
     Dosage: DAILY DOSE 50 MG

REACTIONS (3)
  - Hepatic encephalopathy [Not Recovered/Not Resolved]
  - Oedema peripheral [Recovering/Resolving]
  - Confusional state [Not Recovered/Not Resolved]

NARRATIVE: CASE EVENT DATE: 20190613
